FAERS Safety Report 4833193-2 (Version None)
Quarter: 2005Q4

REPORT INFORMATION
  Report Type: 
  Country: None (occurrence: None)
  Receive Date: 20051117
  Receipt Date: 20051102
  Transmission Date: 20060501
  Serious: Yes (Hospitalization)
  Sender: FDA-Public Use
  Company Number: DE_051117414

PATIENT
  Age: 72 Year
  Sex: Female

DRUGS (10)
  1. CYMBALTA [Suspect]
     Indication: MAJOR DEPRESSION
     Dosage: 90 MG DAY
     Dates: start: 20050511
  2. SEROQUEL [Concomitant]
  3. MIRTAZAPIN (MIRTAZAPINE) [Concomitant]
  4. ZOP (ZOPICLONE) [Concomitant]
  5. MESTINON [Concomitant]
  6. DIGITOXIN TAB [Concomitant]
  7. ATACAND [Concomitant]
  8. PREDNISOLONE [Concomitant]
  9. LAMICTAL [Concomitant]
  10. IDEOS [Concomitant]

REACTIONS (3)
  - ALANINE AMINOTRANSFERASE INCREASED [None]
  - ASPARTATE AMINOTRANSFERASE INCREASED [None]
  - GAMMA-GLUTAMYLTRANSFERASE INCREASED [None]
